FAERS Safety Report 5300748-0 (Version None)
Quarter: 2007Q1

REPORT INFORMATION
  Report Type: 
  Country: None (occurrence: None)
  Receive Date: 20070201
  Receipt Date: 20061011
  Transmission Date: 20070707
  Serious: No
  Sender: FDA-Public Use
  Company Number: 2006PV023001

PATIENT
  Age: 55 Year
  Sex: Male
  Weight: 92.9874 kg

DRUGS (5)
  1. BYETTA [Suspect]
     Indication: DIABETES MELLITUS NON-INSULIN-DEPENDENT
     Dosage: 5 MCG; BID; SC
     Route: 058
     Dates: start: 20060917
  2. LANTUS [Concomitant]
  3. METFORMIN HCL [Concomitant]
  4. PRANDIN ^NOVA NORDISK^ [Concomitant]
  5. ACTOS [Concomitant]

REACTIONS (3)
  - DECREASED APPETITE [None]
  - FOOD CRAVING [None]
  - WEIGHT DECREASED [None]
